FAERS Safety Report 4600089-0 (Version None)
Quarter: 2005Q1

REPORT INFORMATION
  Report Type: 
  Country: None (occurrence: None)
  Receive Date: 20050303
  Receipt Date: 20050216
  Transmission Date: 20050727
  Serious: Yes (Hospitalization)
  Sender: FDA-Public Use
  Company Number: DSK-2005-01500

PATIENT
  Sex: Female

DRUGS (1)
  1. WINTOMYLON TAB [Suspect]
     Dosage: 3 GM PER ORAL
     Route: 048
     Dates: start: 20050211, end: 20050211

REACTIONS (1)
  - CONFUSIONAL STATE [None]
